FAERS Safety Report 7135594-9 (Version None)
Quarter: 2010Q4

REPORT INFORMATION
  Report Type: 
  Country: None (occurrence: None)
  Receive Date: 20101203
  Receipt Date: 20101124
  Transmission Date: 20110411
  Serious: Yes (Hospitalization)
  Sender: FDA-Public Use
  Company Number: US-ABBOTT-10P-163-0687731-00

PATIENT
  Sex: Female
  Weight: 43.6 kg

DRUGS (16)
  1. HUMIRA [Suspect]
     Indication: RHEUMATOID ARTHRITIS
     Route: 050
     Dates: start: 20081107, end: 20090112
  2. PRENATAL VITAMINS [Concomitant]
     Indication: PREGNANCY
     Dosage: 1 PILL, 1 DAILY, STARTED AT 6 WEEKS
     Route: 048
     Dates: start: 20080727, end: 20090111
  3. IRON [Concomitant]
     Indication: PREGNANCY
     Dosage: 1 DAILY, STARTED AT 6 WEEKS
     Route: 048
     Dates: start: 20080727, end: 20090111
  4. CONDOM NOS [Concomitant]
     Indication: CONTRACEPTION
     Dosage: NO SPERMICIDE, VAGINAL
     Route: 061
     Dates: start: 20080505, end: 20080618
  5. PREDNISONE [Concomitant]
     Indication: RHEUMATOID ARTHRITIS
     Dosage: 1 DAILY
     Route: 048
     Dates: start: 20080514, end: 20080514
  6. PREDNISONE [Concomitant]
     Dosage: 1 DAILY
     Route: 048
     Dates: start: 20081107, end: 20081120
  7. PREDNISONE [Concomitant]
     Dosage: 1 DAILY
     Route: 048
     Dates: start: 20081121, end: 20081204
  8. PREDNISONE [Concomitant]
     Dosage: 1 DAILY
     Route: 048
     Dates: start: 20081205, end: 20081218
  9. PREDNISONE [Concomitant]
     Dosage: 1 DAILY
     Route: 048
     Dates: start: 20081219, end: 20081229
  10. NIFEDIPINE [Concomitant]
     Indication: PREMATURE LABOUR
     Dosage: 1 DAILY
     Route: 048
     Dates: start: 20081202, end: 20090111
  11. NIFEDIPINE [Concomitant]
     Indication: PROPHYLAXIS
  12. MEDICATION TO STOP LABOR NOS [Concomitant]
     Indication: PREMATURE LABOUR
     Dosage: ADMINISTERED
     Dates: start: 20081202, end: 20081205
  13. MEDICATION TO STOP LABOR NOS [Concomitant]
     Indication: PROPHYLAXIS
  14. TYLENOL-500 [Concomitant]
     Indication: ARTHRALGIA
     Dosage: 4 TOTAL
     Route: 048
     Dates: start: 20080922, end: 20091218
  15. REMICADE [Concomitant]
     Indication: PRODUCT USED FOR UNKNOWN INDICATION
     Dosage: 1 DAY
     Dates: start: 20080514, end: 20080514
  16. DIPHENHYDRAMINE HCL [Concomitant]
     Indication: PRODUCT USED FOR UNKNOWN INDICATION
     Route: 048
     Dates: start: 20080514, end: 20080514

REACTIONS (1)
  - PREMATURE LABOUR [None]
